FAERS Safety Report 18307140 (Version 1)
Quarter: 2020Q3

REPORT INFORMATION
  Report Type: Spontaneous
  Country: CA (occurrence: CA)
  Receive Date: 20200924
  Receipt Date: 20200924
  Transmission Date: 20201103
  Serious: Yes (Other)
  Sender: FDA-Public Use
  Company Number: CA-BIOVITRUM-2020CA4919

PATIENT
  Sex: Female

DRUGS (9)
  1. TOCILIZUMAB. [Concomitant]
     Active Substance: TOCILIZUMAB
  2. TOFACITINIB [Concomitant]
     Active Substance: TOFACITINIB
  3. KINERET [Suspect]
     Active Substance: ANAKINRA
     Indication: STILL^S DISEASE
     Dosage: 2 MG/KG
  4. CYCLOSPORINE A [Concomitant]
     Active Substance: CYCLOSPORINE
  5. CANAKINUMAB. [Concomitant]
     Active Substance: CANAKINUMAB
  6. EMAPALUMAB [Suspect]
     Active Substance: EMAPALUMAB
     Indication: STILL^S DISEASE
     Dates: start: 201910
  7. EMAPALUMAB [Suspect]
     Active Substance: EMAPALUMAB
     Indication: ALVEOLAR PROTEINOSIS
  8. EMAPALUMAB [Suspect]
     Active Substance: EMAPALUMAB
     Indication: HAEMOPHAGOCYTIC LYMPHOHISTIOCYTOSIS
  9. PREDNISONE. [Concomitant]
     Active Substance: PREDNISONE

REACTIONS (5)
  - Still^s disease [Unknown]
  - Off label use [Unknown]
  - Off label use [Unknown]
  - Haemophagocytic lymphohistiocytosis [Unknown]
  - Condition aggravated [Unknown]

NARRATIVE: CASE EVENT DATE: 201910
